FAERS Safety Report 7629416-7 (Version None)
Quarter: 2011Q3

REPORT INFORMATION
  Report Type: 
  Country: None (occurrence: None)
  Receive Date: 20110722
  Receipt Date: 20110718
  Transmission Date: 20111222
  Serious: Yes (Other)
  Sender: FDA-Public Use
  Company Number: CO-PFIZER INC-2011094186

PATIENT
  Age: 15 Year
  Sex: Female

DRUGS (3)
  1. SOMATROPIN RDNA [Suspect]
     Indication: BODY HEIGHT BELOW NORMAL
     Dosage: 1 MG, 1X/DAY
     Dates: start: 20080901
  2. CEPHALEXIN [Concomitant]
     Dosage: 5 ML, UNK
     Dates: start: 20070101
  3. PEDIASURE [Concomitant]
     Dosage: UNK
     Dates: start: 20010101

REACTIONS (1)
  - TETHERED CORD SYNDROME [None]
